FAERS Safety Report 23709595 (Version 3)
Quarter: 2024Q2

REPORT INFORMATION
  Report Type: Report from Study
  Country: TW (occurrence: TW)
  Receive Date: 20240404
  Receipt Date: 20240410
  Transmission Date: 20240715
  Serious: Yes (Death, Hospitalization, Other)
  Sender: FDA-Public Use
  Company Number: TW-ABBVIE-5702473

PATIENT
  Sex: Male

DRUGS (1)
  1. RINVOQ [Suspect]
     Active Substance: UPADACITINIB
     Indication: Dermatitis atopic
     Route: 048
     Dates: start: 20240207, end: 20240327

REACTIONS (10)
  - Hepatic failure [Fatal]
  - COVID-19 [Unknown]
  - Haematemesis [Unknown]
  - Hepatic mass [Unknown]
  - Haemangioma of liver [Unknown]
  - Focal nodular hyperplasia [Unknown]
  - Haemorrhage [Not Recovered/Not Resolved]
  - Epilepsy [Not Recovered/Not Resolved]
  - Blood bilirubin increased [Unknown]
  - Lung infiltration [Unknown]

NARRATIVE: CASE EVENT DATE: 20240101
